FAERS Safety Report 6180362-8 (Version None)
Quarter: 2009Q2

REPORT INFORMATION
  Report Type: 
  Country: None (occurrence: None)
  Receive Date: 20090506
  Receipt Date: 20090424
  Transmission Date: 20091009
  Serious: Yes (Other)
  Sender: FDA-Public Use
  Company Number: US-PFIZER INC-2006087876

PATIENT
  Sex: Female

DRUGS (13)
  1. PROVERA [Suspect]
     Indication: HORMONE REPLACEMENT THERAPY
     Dosage: UNK
     Route: 048
     Dates: start: 19890101, end: 19950101
  2. PROVERA [Suspect]
     Indication: MENOPAUSAL SYMPTOMS
  3. MEDROXYPROGESTERONE AND MEDROXYPROGESTERONE ACETATE [Suspect]
     Indication: HORMONE REPLACEMENT THERAPY
     Route: 048
  4. CYCRIN [Suspect]
     Indication: HORMONE REPLACEMENT THERAPY
     Dosage: UNK
     Route: 065
     Dates: end: 19990101
  5. CYCRIN [Suspect]
     Indication: MENOPAUSAL SYMPTOMS
  6. ESTRADIOL [Suspect]
     Indication: HORMONE REPLACEMENT THERAPY
     Dosage: UNK
     Route: 065
     Dates: end: 19990101
  7. ESTRADIOL [Suspect]
     Indication: MENOPAUSAL SYMPTOMS
  8. ESTRACE [Suspect]
     Indication: HORMONE REPLACEMENT THERAPY
     Route: 065
  9. PREMARIN [Suspect]
     Indication: HORMONE REPLACEMENT THERAPY
     Dosage: UNK
     Dates: start: 19890101, end: 19950101
  10. PREMARIN [Suspect]
     Indication: MENOPAUSAL SYMPTOMS
  11. NADOLOL [Concomitant]
     Indication: MIGRAINE
     Dosage: UNK
     Dates: start: 19960101
  12. FLUOXETINE [Concomitant]
     Indication: MIGRAINE
     Dosage: UNK
     Dates: start: 19960101
  13. IMITREX [Concomitant]
     Dosage: UNK
     Dates: start: 19980101, end: 20060201

REACTIONS (1)
  - BREAST CANCER FEMALE [None]
